FAERS Safety Report 15733689 (Version 2)
Quarter: 2019Q1

REPORT INFORMATION
  Report Type: Report from Study
  Country: US (occurrence: US)
  Receive Date: 20181218
  Receipt Date: 20190118
  Transmission Date: 20190417
  Serious: No
  Sender: FDA-Public Use
  Company Number: PHEH2018US053333

PATIENT
  Age: 20 Year
  Sex: Female

DRUGS (1)
  1. GILENYA [Suspect]
     Active Substance: FINGOLIMOD HYDROCHLORIDE
     Indication: PRODUCT USED FOR UNKNOWN INDICATION
     Dosage: 0.5 MG, QD
     Route: 048

REACTIONS (2)
  - Dizziness [Unknown]
  - Headache [Unknown]

NARRATIVE: CASE EVENT DATE: 20181209
